FAERS Safety Report 9525318 (Version 1)
Quarter: 2013Q1

REPORT INFORMATION
  Report Type: Spontaneous
  Country: US (occurrence: None)
  Receive Date: 20130305
  Receipt Date: 20130305
  Transmission Date: 20140127
  Serious: Yes (Other)
  Sender: FDA-Public Use
  Company Number: 163-21880-12023003

PATIENT
  Age: 88 Year
  Sex: Male
  Weight: 79.38 kg

DRUGS (14)
  1. REVLIMID [Suspect]
     Indication: PLASMA CELL MYELOMA
     Dosage: 10 MG, TWO WEEKS ON AND ONE WEEK , PO
     Route: 048
     Dates: start: 20110815
  2. VITAMIN B12 (CYANOCOBALAMIN) [Concomitant]
  3. NAMENDA (MEMANTINE HYDROCHLORIDE) [Concomitant]
  4. BABY ASPIRIN (ACETYLSALICYLIC ACID) [Concomitant]
  5. PRAVACHOL (PRAVASTATIN SODIUM) [Concomitant]
  6. COLACE (DOCUSATE SODIUM) [Concomitant]
  7. PROCRIT [Concomitant]
  8. DECADRON (DEXAMETHASONE) [Concomitant]
  9. SENOKOT (SENNA FRUIT) [Concomitant]
  10. FLUDROCORTISONE (FLUDROCORTISONE) [Concomitant]
  11. ZOMETA (ZOLEDRONIC ACID) [Concomitant]
  12. LEXAPRO (ESCITALOPRAM OXALATE) [Concomitant]
  13. LIDODERM (LIDOCAINE) (POULTICE OR PATCH) [Concomitant]
  14. MIRALAX [Concomitant]

REACTIONS (1)
  - Thrombosis [None]
